FAERS Safety Report 23897273 (Version 2)
Quarter: 2024Q2

REPORT INFORMATION
  Report Type: Spontaneous
  Country: ES (occurrence: ES)
  Receive Date: 20240524
  Receipt Date: 20240531
  Transmission Date: 20240716
  Serious: Yes (Hospitalization)
  Sender: FDA-Public Use
  Company Number: ES-002147023-NVSC2024ES106947

PATIENT
  Age: 53 Year
  Sex: Male

DRUGS (1)
  1. CYCLOSPORINE [Suspect]
     Active Substance: CYCLOSPORINE
     Indication: Dermatitis exfoliative generalised
     Dosage: UNK
     Route: 065

REACTIONS (2)
  - Toxicity to various agents [Unknown]
  - Drug ineffective [Unknown]
